FAERS Safety Report 21729305 (Version 5)
Quarter: 2023Q2

REPORT INFORMATION
  Report Type: Report from Study
  Country: CN (occurrence: None)
  Receive Date: 20221214
  Receipt Date: 20230403
  Transmission Date: 20230722
  Serious: Yes (Hospitalization)
  Sender: FDA-Public Use
  Company Number: CN-Eisai Medical Research-EC-2022-129757

PATIENT
  Age: 58 Year
  Sex: Female
  Weight: 57 kg

DRUGS (26)
  1. LENVATINIB [Suspect]
     Active Substance: LENVATINIB
     Indication: Hepatocellular carcinoma
     Route: 048
     Dates: start: 20220819, end: 20221031
  2. LENVATINIB [Suspect]
     Active Substance: LENVATINIB
     Route: 048
     Dates: start: 20221123
  3. ATEZOLIZUMAB [Suspect]
     Active Substance: ATEZOLIZUMAB
     Indication: Hepatocellular carcinoma
     Route: 041
     Dates: start: 20221018
  4. CYSTEINE HYDROCHLORIDE;GLYCINE;GLYCYRRHIZIC ACID [Concomitant]
  5. URSODIOL [Concomitant]
     Active Substance: URSODIOL
  6. BICYCLOL [Concomitant]
     Active Substance: BICYCLOL
  7. ACETAMINOPHEN\TRAMADOL [Concomitant]
     Active Substance: ACETAMINOPHEN\TRAMADOL
  8. METOPROLOL SUCCINATE [Concomitant]
     Active Substance: METOPROLOL SUCCINATE
  9. NIFEDIPINE [Concomitant]
     Active Substance: NIFEDIPINE
  10. OMEPRAZOLE SODIUM [Concomitant]
     Active Substance: OMEPRAZOLE SODIUM
  11. ASCORBIC ACID [Concomitant]
     Active Substance: ASCORBIC ACID
  12. MAGNESIUM ISOGLYCYRRHIZINATE [Concomitant]
     Active Substance: MAGNESIUM ISOGLYCYRRHIZINATE
  13. POTASSIUM CHLORIDE [Concomitant]
     Active Substance: POTASSIUM CHLORIDE
  14. FAMOTIDINE [Concomitant]
     Active Substance: FAMOTIDINE
  15. OLMESARTAN MEDOXOMIL [Concomitant]
     Active Substance: OLMESARTAN MEDOXOMIL
  16. IBUPROFEN [Concomitant]
     Active Substance: IBUPROFEN
  17. CARBAZOCHROME SODIUM SULFONATE [Concomitant]
     Active Substance: CARBAZOCHROME SODIUM SULFONATE
  18. ARMILLARISIN ANATRICOME [Concomitant]
  19. AMOXICILLIN [Concomitant]
     Active Substance: AMOXICILLIN
  20. CEFIXIME [Concomitant]
     Active Substance: CEFIXIME
  21. HERBALS\DIAMMONIUM GLYCYRRHIZINATE [Concomitant]
     Active Substance: HERBALS\DIAMMONIUM GLYCYRRHIZINATE
  22. MOSAPRIDE CITRATE [Concomitant]
     Active Substance: MOSAPRIDE CITRATE
  23. ORNITHINE ASPARTATE [Concomitant]
     Active Substance: ORNITHINE ASPARTATE
  24. OMEPRAZOLE [Concomitant]
     Active Substance: OMEPRAZOLE
  25. VALSARTAN [Concomitant]
     Active Substance: VALSARTAN
  26. AMLODIPINE [Concomitant]
     Active Substance: AMLODIPINE BESYLATE

REACTIONS (1)
  - Upper gastrointestinal haemorrhage [Recovered/Resolved]

NARRATIVE: CASE EVENT DATE: 20221029
